FAERS Safety Report 6753958-X (Version None)
Quarter: 2010Q2

REPORT INFORMATION
  Report Type: 
  Country: None (occurrence: None)
  Receive Date: 20100603
  Receipt Date: 20100521
  Transmission Date: 20101027
  Serious: Yes (Hospitalization)
  Sender: FDA-Public Use
  Company Number: A0861754A

PATIENT
  Age: 61 Year
  Weight: 108.5 kg

DRUGS (10)
  1. TOPOTECAN [Suspect]
     Indication: GLIOBLASTOMA MULTIFORME
     Dosage: 5MGM2 CYCLIC
     Route: 048
     Dates: start: 20100324
  2. TEMOZOLOMIDE [Suspect]
     Indication: GLIOBLASTOMA MULTIFORME
     Dosage: 200MGM2 CYCLIC
     Route: 048
     Dates: start: 20100114
  3. BEVACIZUMAB [Suspect]
     Indication: GLIOBLASTOMA MULTIFORME
     Dosage: 10MGK EVERY TWO WEEKS
     Route: 042
     Dates: start: 20100114
  4. RADIATION THERAPY [Suspect]
     Indication: GLIOBLASTOMA MULTIFORME
     Route: 061
     Dates: start: 20100114, end: 20100319
  5. KEPPRA [Concomitant]
  6. PEPCID [Concomitant]
  7. HYDROCORTISONE [Concomitant]
  8. AMBIEN [Concomitant]
  9. FLONASE [Concomitant]
  10. RITALIN [Concomitant]

REACTIONS (4)
  - DEEP VEIN THROMBOSIS [None]
  - PANCYTOPENIA [None]
  - PULMONARY EMBOLISM [None]
  - THROMBOCYTOPENIA [None]
